FAERS Safety Report 6122298-4 (Version None)
Quarter: 2009Q1

REPORT INFORMATION
  Report Type: 
  Country: None (occurrence: None)
  Receive Date: 20090316
  Receipt Date: 20090316
  Transmission Date: 20090719
  Serious: No
  Sender: FDA-Public Use
  Company Number: None

PATIENT
  Age: 20 Year
  Sex: Female
  Weight: 65.7716 kg

DRUGS (1)
  1. MAXALT [Suspect]
     Dosage: 1 TABLET ONCE PO, SEVERAL HOURS
     Route: 048
     Dates: start: 20090310, end: 20090310

REACTIONS (3)
  - HEADACHE [None]
  - PAIN [None]
  - RASH [None]
